FAERS Safety Report 11741162 (Version 5)
Quarter: 2016Q1

REPORT INFORMATION
  Report Type: Spontaneous
  Country: US (occurrence: US)
  Receive Date: 20151116
  Receipt Date: 20160129
  Transmission Date: 20160525
  Serious: No
  Sender: FDA-Public Use
  Company Number: US-AMGEN-USASL2015118490

PATIENT
  Age: 23 Year
  Sex: Male

DRUGS (1)
  1. ENBREL [Suspect]
     Active Substance: ETANERCEPT
     Indication: ANKYLOSING SPONDYLITIS
     Dosage: UNK
     Route: 065
     Dates: start: 2013

REACTIONS (6)
  - Wrong technique in product usage process [Unknown]
  - Injection site extravasation [Unknown]
  - Underdose [Unknown]
  - Device malfunction [Unknown]
  - Device issue [Unknown]
  - Pain [Unknown]
